FAERS Safety Report 25455602 (Version 2)
Quarter: 2025Q2

REPORT INFORMATION
  Report Type: Spontaneous
  Country: US (occurrence: US)
  Receive Date: 20250619
  Receipt Date: 20250626
  Transmission Date: 20250716
  Serious: No
  Sender: ROCHE
  Company Number: US-ROCHE-10000308805

PATIENT
  Age: 16 Year
  Sex: Male

DRUGS (7)
  1. XOLAIR [Suspect]
     Active Substance: OMALIZUMAB
     Indication: Product used for unknown indication
     Route: 065
  2. XOLAIR [Suspect]
     Active Substance: OMALIZUMAB
     Route: 065
  3. XOLAIR [Suspect]
     Active Substance: OMALIZUMAB
     Dosage: LAST TAKEN 18-JUN-2025
     Route: 058
     Dates: start: 202406
  4. XOLAIR [Suspect]
     Active Substance: OMALIZUMAB
     Dosage: LAST TAKEN 18-JUN-2025
     Route: 058
     Dates: start: 202406
  5. XOLAIR [Suspect]
     Active Substance: OMALIZUMAB
     Dosage: LAST TAKEN 18-JUN-2025
     Route: 058
     Dates: start: 202406
  6. AMOXAPINE [Concomitant]
     Active Substance: AMOXAPINE
  7. MINOCYCLINE [Concomitant]
     Active Substance: MINOCYCLINE HYDROCHLORIDE

REACTIONS (3)
  - Product dose omission issue [Unknown]
  - Device use error [Unknown]
  - No adverse event [Unknown]

NARRATIVE: CASE EVENT DATE: 20250607
